FAERS Safety Report 18169451 (Version 1)
Quarter: 2020Q3

REPORT INFORMATION
  Report Type: Report from Study
  Country: US (occurrence: US)
  Receive Date: 20200819
  Receipt Date: 20200819
  Transmission Date: 20201103
  Serious: Yes (Other)
  Sender: FDA-Public Use
  Company Number: US-TEVA-2020-US-1817324

PATIENT
  Age: 41 Year
  Sex: Female
  Weight: 104.32 kg

DRUGS (1)
  1. AUSTEDO [Suspect]
     Active Substance: DEUTETRABENAZINE
     Indication: TARDIVE DYSKINESIA
     Dosage: 18 MILLIGRAM DAILY; BID
     Route: 048
     Dates: start: 202004

REACTIONS (2)
  - Muscle spasms [Unknown]
  - Movement disorder [Unknown]

NARRATIVE: CASE EVENT DATE: 202004
